FAERS Safety Report 18740123 (Version 1)
Quarter: 2021Q1

REPORT INFORMATION
  Report Type: Spontaneous
  Country: US (occurrence: US)
  Receive Date: 20210114
  Receipt Date: 20210114
  Transmission Date: 20210419
  Serious: Yes (Hospitalization)
  Sender: FDA-Public Use
  Company Number: None

PATIENT
  Age: 64 Year
  Sex: Male

DRUGS (2)
  1. CHLORTHALID [Concomitant]
     Active Substance: CHLORTHALIDONE
     Dates: start: 20201119
  2. OCTREOTIDE. [Suspect]
     Active Substance: OCTREOTIDE
     Indication: HEPATIC CANCER
     Route: 058
     Dates: start: 20201202

REACTIONS (1)
  - Tumour excision [None]

NARRATIVE: CASE EVENT DATE: 20210114
